FAERS Safety Report 4887484-X (Version None)
Quarter: 2006Q1

REPORT INFORMATION
  Report Type: 
  Country: None (occurrence: None)
  Receive Date: 20060118
  Receipt Date: 20060106
  Transmission Date: 20060701
  Serious: Yes (Death)
  Sender: FDA-Public Use
  Company Number: 2006005544

PATIENT
  Age: 70 Year
  Sex: Male
  Weight: 35 kg

DRUGS (2)
  1. VFEND [Suspect]
     Indication: ILL-DEFINED DISORDER
     Dosage: SEE IMAGE
     Route: 042
     Dates: start: 20051229
  2. VFEND [Suspect]
     Indication: ILL-DEFINED DISORDER
     Dosage: SEE IMAGE
     Route: 042
     Dates: start: 20051230

REACTIONS (2)
  - ASPERGILLOSIS [None]
  - RESPIRATORY FAILURE [None]
